FAERS Safety Report 10033859 (Version 4)
Quarter: 2014Q2

REPORT INFORMATION
  Report Type: Spontaneous
  Country: US (occurrence: US)
  Receive Date: 20140325
  Receipt Date: 20140627
  Transmission Date: 20141212
  Serious: Yes (Other)
  Sender: FDA-Public Use
  Company Number: US-009507513-1403USA009483

PATIENT
  Age: 51 Year
  Sex: Female
  Weight: 69.39 kg

DRUGS (9)
  1. TEMODAR [Suspect]
     Indication: ANAPLASTIC ASTROCYTOMA
     Dosage: 120 MG, QD, 7 DAYS ON AND 7 DAYS OFF
     Route: 048
     Dates: start: 20140120, end: 20140312
  2. TEMODAR [Suspect]
     Indication: MALIGNANT GLIOMA
  3. KEPPRA [Concomitant]
     Indication: CONVULSION
     Dosage: 300 MG, BID
     Dates: start: 201312
  4. SYNTHROID [Concomitant]
     Indication: HYPOTHYROIDISM
     Dosage: 88 MICROGRAM, QD
     Dates: start: 2001
  5. PRILOSEC [Concomitant]
     Indication: GASTROOESOPHAGEAL REFLUX DISEASE
     Dosage: 10 MG, QD
     Dates: start: 2001
  6. DECADRON [Concomitant]
     Indication: HEADACHE
     Dosage: 6 ML, QD
     Dates: start: 20140528
  7. ZOFRAN [Concomitant]
     Indication: NAUSEA
     Dosage: 8 MG, PRN
  8. KYTRIL [Concomitant]
  9. HEXADROL TABLETS [Concomitant]

REACTIONS (2)
  - Anaplastic astrocytoma [Not Recovered/Not Resolved]
  - Drug ineffective [Not Recovered/Not Resolved]
